FAERS Safety Report 6304085-7 (Version None)
Quarter: 2009Q3

REPORT INFORMATION
  Report Type: 
  Country: None (occurrence: None)
  Receive Date: 20090810
  Receipt Date: 20090810
  Transmission Date: 20100115
  Serious: Yes (Hospitalization)
  Sender: FDA-Public Use
  Company Number: None

PATIENT
  Sex: Female
  Weight: 15.8 kg

DRUGS (1)
  1. ERWINIA ASPARAGINASE [Suspect]
     Indication: ACUTE LYMPHOCYTIC LEUKAEMIA
     Dosage: 25,000 UNITS/M2 X12 IM
     Route: 030
     Dates: start: 20090508, end: 20090609

REACTIONS (2)
  - COUGH [None]
  - DRUG HYPERSENSITIVITY [None]
